FAERS Safety Report 26194484 (Version 1)
Quarter: 2025Q4

REPORT INFORMATION
  Report Type: Report from Study
  Country: US (occurrence: US)
  Receive Date: 20251224
  Receipt Date: 20251224
  Transmission Date: 20260118
  Serious: Yes (Death, Other)
  Sender: ACADIA PHARMACEUTICALS
  Company Number: US-ACADIA PHARMACEUTICALS INC.-ACA-2025-PIM-013439

PATIENT
  Sex: Female

DRUGS (21)
  1. NUPLAZID [Suspect]
     Active Substance: PIMAVANSERIN TARTRATE
     Indication: Parkinson^s disease psychosis
     Dosage: 34 MILLIGRAM, QD
     Route: 048
     Dates: start: 20250925
  2. ACETAMINOPHEN [Concomitant]
     Active Substance: ACETAMINOPHEN
  3. CARBIDOPA\LEVODOPA [Concomitant]
     Active Substance: CARBIDOPA\LEVODOPA
  4. CITALOPRAM [Concomitant]
     Active Substance: CITALOPRAM
  5. COLCHICINE [Concomitant]
     Active Substance: COLCHICINE
  6. ENTACAPONE [Concomitant]
     Active Substance: ENTACAPONE
  7. FERROUS SULFATE [Concomitant]
     Active Substance: FERROUS SULFATE
  8. FOLIC ACID [Concomitant]
     Active Substance: FOLIC ACID
  9. HYDROXYCHLOROQUINE SULFATE [Concomitant]
     Active Substance: HYDROXYCHLOROQUINE SULFATE
  10. LEVOTHYROXINE [Concomitant]
     Active Substance: LEVOTHYROXINE
  11. LOSARTAN [Concomitant]
     Active Substance: LOSARTAN
  12. METOPROLOL TARTRATE [Concomitant]
     Active Substance: METOPROLOL TARTRATE
  13. OXYCODONE [Concomitant]
     Active Substance: OXYCODONE
  14. POTASSIUM BROMIDE [Concomitant]
     Active Substance: POTASSIUM BROMIDE
  15. PREDNISONE [Concomitant]
     Active Substance: PREDNISONE
  16. RIVASTIGMINE [Concomitant]
     Active Substance: RIVASTIGMINE
  17. SENNA [Concomitant]
     Active Substance: SENNOSIDES
  18. SIMVASTATIN [Concomitant]
     Active Substance: SIMVASTATIN
  19. TRAMADOL HCL [Concomitant]
     Active Substance: TRAMADOL HYDROCHLORIDE
  20. VITAMIN D [Concomitant]
     Active Substance: VITAMIN D NOS
  21. VOLTARENSPE [Concomitant]

REACTIONS (1)
  - Death [Fatal]
